FAERS Safety Report 24575374 (Version 1)
Quarter: 2024Q4

REPORT INFORMATION
  Report Type: Spontaneous
  Country: AU (occurrence: AU)
  Receive Date: 20241104
  Receipt Date: 20241104
  Transmission Date: 20250115
  Serious: Yes (Disabling, Other)
  Sender: SANDOZ
  Company Number: AU-002147023-PHHY2017AU130549

PATIENT
  Age: 45 Year
  Sex: Male

DRUGS (8)
  1. MYCOPHENOLATE SODIUM [Suspect]
     Active Substance: MYCOPHENOLATE SODIUM
     Indication: Renal transplant
     Route: 065
  2. MYCOPHENOLATE SODIUM [Suspect]
     Active Substance: MYCOPHENOLATE SODIUM
     Indication: Immunosuppressant drug therapy
  3. PREDNISONE [Suspect]
     Active Substance: PREDNISONE
     Indication: Renal transplant
     Dosage: UNK
     Route: 065
  4. PREDNISONE [Suspect]
     Active Substance: PREDNISONE
     Indication: Immunosuppressant drug therapy
  5. TACROLIMUS [Interacting]
     Active Substance: TACROLIMUS
     Indication: Renal transplant
     Route: 065
  6. TACROLIMUS [Interacting]
     Active Substance: TACROLIMUS
     Indication: Immunosuppressant drug therapy
  7. VORICONAZOLE [Interacting]
     Active Substance: VORICONAZOLE
     Indication: Osteomyelitis
     Dosage: UNK
     Route: 048
  8. VORICONAZOLE [Interacting]
     Active Substance: VORICONAZOLE
     Indication: Staphylococcal infection
     Route: 048

REACTIONS (7)
  - Staphylococcal infection [Recovering/Resolving]
  - Polyomavirus-associated nephropathy [Recovering/Resolving]
  - Scedosporium infection [Recovering/Resolving]
  - Drug interaction [Recovering/Resolving]
  - Oedema peripheral [Recovered/Resolved]
  - Osteomyelitis [Recovering/Resolving]
  - Complications of transplanted kidney [Recovered/Resolved]
